FAERS Safety Report 24409314 (Version 1)
Quarter: 2024Q4

REPORT INFORMATION
  Report Type: Spontaneous
  Country: NL (occurrence: NL)
  Receive Date: 20241008
  Receipt Date: 20241008
  Transmission Date: 20250115
  Serious: Yes (Death, Other)
  Sender: CELLTRION
  Company Number: None

PATIENT

DRUGS (1)
  1. ADALIMUMAB [Suspect]
     Active Substance: ADALIMUMAB
     Indication: Crohn^s disease
     Dosage: 40 MG EVERY 2 WEEKS; GESTATION PERIOD AT TIME OF EXPOSURE: 0 WK
     Route: 064
     Dates: start: 20190101

REACTIONS (4)
  - Necrotising enterocolitis neonatal [Fatal]
  - Sepsis neonatal [Fatal]
  - Maternal exposure during pregnancy [Unknown]
  - Foetal exposure during pregnancy [Unknown]
